FAERS Safety Report 24401527 (Version 1)
Quarter: 2024Q4

REPORT INFORMATION
  Report Type: Spontaneous
  Country: PT (occurrence: PT)
  Receive Date: 20241007
  Receipt Date: 20241007
  Transmission Date: 20250115
  Serious: Yes (Hospitalization, Other)
  Sender: AUROBINDO
  Company Number: PT-ATRAL-20240240

PATIENT
  Age: 49 Year
  Sex: Female

DRUGS (2)
  1. CEFIXIME [Suspect]
     Active Substance: CEFIXIME
     Indication: Dysuria
     Dosage: UNKNOWN DOSAGE
     Route: 065
     Dates: start: 202303
  2. CEFIXIME [Suspect]
     Active Substance: CEFIXIME
     Indication: Pollakiuria

REACTIONS (3)
  - Haemolytic anaemia [Recovering/Resolving]
  - Malaise [Recovering/Resolving]
  - Asthenia [Recovering/Resolving]
